FAERS Safety Report 15449919 (Version 1)
Quarter: 2018Q4

REPORT INFORMATION
  Report Type: Report from Study
  Country: JP (occurrence: JP)
  Receive Date: 20181001
  Receipt Date: 20181001
  Transmission Date: 20190204
  Serious: Yes (Other)
  Sender: FDA-Public Use
  Company Number: JP-ROCHE-2187913

PATIENT

DRUGS (1)
  1. TOCILIZUMAB. [Suspect]
     Active Substance: TOCILIZUMAB
     Indication: RHEUMATOID ARTHRITIS
     Route: 042

REACTIONS (16)
  - Radius fracture [Unknown]
  - Enterocolitis [Unknown]
  - Platelet count decreased [Unknown]
  - Herpes zoster [Unknown]
  - Respiratory tract infection [Unknown]
  - Gastroenteritis [Unknown]
  - Dizziness [Unknown]
  - Nausea [Unknown]
  - Spinal compression fracture [Unknown]
  - Sepsis [Unknown]
  - Fatigue [Unknown]
  - Pyelonephritis [Unknown]
  - Hyperlipidaemia [Unknown]
  - Pneumonia [Unknown]
  - Neutropenia [Unknown]
  - Urinary tract infection [Unknown]
